FAERS Safety Report 5166532-6 (Version None)
Quarter: 2006Q4

REPORT INFORMATION
  Report Type: 
  Country: None (occurrence: None)
  Receive Date: 20061207
  Receipt Date: 20061124
  Transmission Date: 20070319
  Serious: Yes (Hospitalization)
  Sender: FDA-Public Use
  Company Number: PHBS2006AU18567

PATIENT
  Age: 23 Year
  Sex: Female

DRUGS (3)
  1. CARBAMAZEPINE [Suspect]
     Dosage: 400 MG/DAY
     Route: 065
  2. HALOPERIDOL [Concomitant]
     Dosage: 10 MG/DAY
     Route: 065
  3. CHLORPROMAZINE [Concomitant]
     Dosage: 600 MG/DAY
     Route: 065

REACTIONS (11)
  - ACCIDENTAL EXPOSURE [None]
  - BIPOLAR I DISORDER [None]
  - EXTRAPYRAMIDAL DISORDER [None]
  - FACE OEDEMA [None]
  - GRANDIOSITY [None]
  - HYPERSENSITIVITY [None]
  - LOGORRHOEA [None]
  - MUSCLE RIGIDITY [None]
  - PSYCHOMOTOR HYPERACTIVITY [None]
  - RASH MACULO-PAPULAR [None]
  - SALIVARY HYPERSECRETION [None]
